FAERS Safety Report 16858490 (Version 1)
Quarter: 2019Q3

REPORT INFORMATION
  Report Type: Spontaneous
  Country: US (occurrence: US)
  Receive Date: 20190926
  Receipt Date: 20190926
  Transmission Date: 20191005
  Serious: No
  Sender: FDA-Public Use
  Company Number: US-TEVA-2019-US-1113208

PATIENT
  Sex: Male

DRUGS (1)
  1. TESTOSTERONE GEL 1 % ACTAVIS [Suspect]
     Active Substance: TESTOSTERONE
     Route: 062

REACTIONS (1)
  - Erection increased [Unknown]

NARRATIVE: CASE EVENT DATE: 201907
